FAERS Safety Report 8805734 (Version 2)
Quarter: 2013Q1

REPORT INFORMATION
  Report Type: Spontaneous
  Country: GB (occurrence: None)
  Receive Date: 20120917
  Receipt Date: 20121113
  Transmission Date: 20140127
  Serious: Yes (Life-Threatening)
  Sender: FDA-Public Use
  Company Number: COL_12340_2012

PATIENT
  Sex: Female

DRUGS (14)
  1. COLGATE TOTAL PRO GUM HEALTH TARTAR [Suspect]
     Indication: DENTAL CARE
     Dosage: 1/4 OF INCH/TWICE/ORAL
     Route: 048
     Dates: start: 20120906, end: 20120907
  2. COLGATE TOTAL PRO GUM HEALTH TARTAR [Suspect]
     Indication: DENTAL PLAQUE
     Dosage: 1/4 OF INCH/TWICE/ORAL
     Route: 048
     Dates: start: 20120906, end: 20120907
  3. COLGATE TOTAL PRO GUM HEALTH TARTAR [Suspect]
     Dosage: 1/4 OF INCH/TWICE/ORAL
     Route: 048
     Dates: start: 20120906, end: 20120907
  4. SODIUM FLUORIDE\TRICLOSAN [Suspect]
     Route: 048
  5. SODIUM FLUORIDE\TRICLOSAN [Suspect]
     Route: 048
  6. SODIUM FLUORIDE\TRICLOSAN [Suspect]
     Route: 048
  7. PRAXILENE [Concomitant]
  8. TERBINAFINE [Concomitant]
  9. METFORMIN [Concomitant]
  10. FUROSEMIDE [Concomitant]
  11. ASPIRIN ENTERIC COATED K.P. [Concomitant]
  12. LEVOTHYROXINE [Concomitant]
  13. RAMIPRIL [Concomitant]
  14. VENTOLIN /00139501/ [Concomitant]

REACTIONS (6)
  - Hypersensitivity [None]
  - Sleep disorder [None]
  - Cough [None]
  - Dyspnoea [None]
  - Throat irritation [None]
  - Feeling abnormal [None]
